FAERS Safety Report 21842062 (Version 2)
Quarter: 2023Q1

REPORT INFORMATION
  Report Type: Spontaneous
  Country: US (occurrence: US)
  Receive Date: 20230110
  Receipt Date: 20230310
  Transmission Date: 20230417
  Serious: Yes (Other)
  Sender: FDA-Public Use
  Company Number: US-BRISTOL-MYERS SQUIBB COMPANY-2023-002875

PATIENT
  Age: 81 Year
  Sex: Male
  Weight: 96.62 kg

DRUGS (1)
  1. REVLIMID [Suspect]
     Active Substance: LENALIDOMIDE
     Indication: Plasma cell myeloma
     Dosage: 21D OF 35D CYCLE?21 DAYS DAILY
     Route: 048
     Dates: start: 20221101

REACTIONS (5)
  - Fatigue [Unknown]
  - Prostatic disorder [Unknown]
  - Off label use [Unknown]
  - Joint swelling [Unknown]
  - Haemoglobin decreased [Unknown]
